FAERS Safety Report 22371622 (Version 1)
Quarter: 2023Q2

REPORT INFORMATION
  Report Type: Spontaneous
  Country: US (occurrence: None)
  Receive Date: 20230525
  Receipt Date: 20230525
  Transmission Date: 20230722
  Serious: Yes (Hospitalization, Other)
  Sender: FDA-Public Use
  Company Number: None

PATIENT
  Sex: Male

DRUGS (1)
  1. CAPECITABINE [Suspect]
     Active Substance: CAPECITABINE
     Dosage: FREQUENCY : TWICE A DAY;?
     Route: 048

REACTIONS (9)
  - Syncope [None]
  - Deep vein thrombosis [None]
  - Cellulitis [None]
  - Bone disorder [None]
  - Haematological infection [None]
  - Biliary obstruction [None]
  - Haemorrhage [None]
  - Septic shock [None]
  - Gait inability [None]
